FAERS Safety Report 20170877 (Version 1)
Quarter: 2021Q4

REPORT INFORMATION
  Report Type: Spontaneous
  Country: US (occurrence: US)
  Receive Date: 20211210
  Receipt Date: 20211210
  Transmission Date: 20220303
  Serious: Yes (Other)
  Sender: FDA-Public Use
  Company Number: US-ELI_LILLY_AND_COMPANY-US202112000750

PATIENT
  Sex: Male

DRUGS (1)
  1. CIALIS [Suspect]
     Active Substance: TADALAFIL
     Indication: Product used for unknown indication
     Dosage: 10-15 MG, UNKNOWN
     Route: 065

REACTIONS (8)
  - Pancreatitis chronic [Unknown]
  - Pancreatic calcification [Unknown]
  - Bile duct stone [Unknown]
  - Biliary obstruction [Unknown]
  - Osteoporosis [Unknown]
  - Acidosis [Unknown]
  - Gastrooesophageal reflux disease [Unknown]
  - Blood pressure decreased [Unknown]

NARRATIVE: CASE EVENT DATE: 20150101
